FAERS Safety Report 24012578 (Version 2)
Quarter: 2025Q2

REPORT INFORMATION
  Report Type: Report from Study
  Country: CA (occurrence: CA)
  Receive Date: 20240626
  Receipt Date: 20250603
  Transmission Date: 20250716
  Serious: Yes (Other)
  Sender: SANDOZ
  Company Number: CA-002147023-NVSC2022CA148248

PATIENT
  Age: 29 Year
  Sex: Female
  Weight: 78.912 kg

DRUGS (2)
  1. HYRIMOZ [Suspect]
     Active Substance: ADALIMUMAB-ADAZ
     Indication: Crohn^s disease
     Dosage: 40 MG, 1 PEN EVERY 2 WEEKS
     Route: 058
     Dates: start: 20220623
  2. HYRIMOZ [Suspect]
     Active Substance: ADALIMUMAB-ADAZ
     Dosage: 40MG S.C. EVERY TWO WEEKS
     Route: 058
     Dates: start: 20240606

REACTIONS (22)
  - Crohn^s disease [Not Recovered/Not Resolved]
  - General physical health deterioration [Not Recovered/Not Resolved]
  - Rhinorrhoea [Unknown]
  - Illness [Unknown]
  - Nasal congestion [Unknown]
  - Dry throat [Unknown]
  - Chills [Unknown]
  - Iron deficiency [Unknown]
  - COVID-19 [Unknown]
  - Sinonasal obstruction [Unknown]
  - Loss of personal independence in daily activities [Unknown]
  - Aphthous ulcer [Unknown]
  - Fatigue [Unknown]
  - Back pain [Unknown]
  - Mood altered [Unknown]
  - Headache [Unknown]
  - Arthralgia [Unknown]
  - Dysphagia [Unknown]
  - Abdominal pain [Not Recovered/Not Resolved]
  - Muscle spasms [Unknown]
  - Dizziness [Unknown]
  - Product dose omission issue [Unknown]

NARRATIVE: CASE EVENT DATE: 20220804
